FAERS Safety Report 21692249 (Version 1)
Quarter: 2022Q4

REPORT INFORMATION
  Report Type: Spontaneous
  Country: ES (occurrence: ES)
  Receive Date: 20221207
  Receipt Date: 20221207
  Transmission Date: 20230113
  Serious: Yes (Other)
  Sender: FDA-Public Use
  Company Number: ES-SUN PHARMACEUTICAL INDUSTRIES LTD-2022R1-364070

PATIENT
  Age: 70 Year
  Sex: Female

DRUGS (1)
  1. SUNITINIB MALATE [Suspect]
     Active Substance: SUNITINIB MALATE
     Indication: Chemotherapy
     Dosage: UNK
     Route: 065

REACTIONS (5)
  - Hypothyroidism [Unknown]
  - Neutropenia [Unknown]
  - Blindness [Unknown]
  - Neoplasm progression [Unknown]
  - Antinuclear antibody positive [Unknown]
